FAERS Safety Report 13910410 (Version 1)
Quarter: 2017Q3

REPORT INFORMATION
  Report Type: Spontaneous
  Country: US (occurrence: US)
  Receive Date: 20170825
  Receipt Date: 20170825
  Transmission Date: 20171127
  Serious: Yes (Other)
  Sender: FDA-Public Use
  Company Number: None

PATIENT
  Age: 53 Year
  Sex: Male
  Weight: 92.7 kg

DRUGS (5)
  1. LISINOPRIL. [Suspect]
     Active Substance: LISINOPRIL
     Indication: HYPERTENSION
     Dosage: ?          QUANTITY:90 TABLET(S);?
     Route: 048
     Dates: start: 20150810, end: 20150820
  2. AMALODIPINE [Concomitant]
  3. NEBULIZER [Concomitant]
     Active Substance: DEVICE
  4. ASPRIN [Concomitant]
     Active Substance: ASPIRIN
  5. LISINOPRIL. [Concomitant]
     Active Substance: LISINOPRIL

REACTIONS (4)
  - Lethargy [None]
  - Incoherent [None]
  - Ataxia [None]
  - Dysarthria [None]

NARRATIVE: CASE EVENT DATE: 20170824
